FAERS Safety Report 15222629 (Version 2)
Quarter: 2018Q3

REPORT INFORMATION
  Report Type: Spontaneous
  Country: PT (occurrence: PT)
  Receive Date: 20180731
  Receipt Date: 20180829
  Transmission Date: 20181010
  Serious: Yes (Hospitalization)
  Sender: FDA-Public Use
  Company Number: PHHY2018PT058043

PATIENT
  Age: 72 Year
  Sex: Female
  Weight: 57 kg

DRUGS (14)
  1. PREDNISOLONE. [Concomitant]
     Active Substance: PREDNISOLONE
     Indication: NASAL POLYPS
     Dosage: 60 MG, QD
     Route: 048
     Dates: start: 20180323, end: 20180327
  2. FLUTIFORM [Concomitant]
     Active Substance: FLUTICASONE PROPIONATE\FORMOTEROL FUMARATE
     Indication: ASTHMA
     Dosage: 4 DF,QD
     Route: 055
     Dates: start: 2016
  3. MOLINAR [Concomitant]
     Indication: PROPHYLAXIS
     Dosage: 22400 IU, QD
     Route: 048
     Dates: start: 20171102
  4. MOLINAR [Concomitant]
     Dosage: 22400 IU,QD
     Route: 048
     Dates: start: 20171102
  5. TIOTROPIUM BROMIDE [Concomitant]
     Active Substance: TIOTROPIUM BROMIDE
     Indication: ASTHMA
     Dosage: 2 DF, QD
     Route: 055
     Dates: start: 2016
  6. SINGULAIR [Concomitant]
     Active Substance: MONTELUKAST SODIUM
     Indication: ASTHMA
     Dosage: 10 MG,QD
     Route: 048
     Dates: start: 2002
  7. MOMETASONE FUROATE. [Suspect]
     Active Substance: MOMETASONE FUROATE
     Indication: NASAL POLYPS
     Dosage: 400 UG,QD
     Route: 045
     Dates: start: 20170420
  8. SALINE [Concomitant]
     Active Substance: SODIUM CHLORIDE
     Indication: NASAL CONGESTION
     Dosage: UNK UNK, QD
     Route: 045
     Dates: start: 20170410
  9. UNICONTIN [Concomitant]
     Indication: ASTHMA
     Dosage: 400 MG,QD
     Route: 048
     Dates: start: 2002
  10. TIOTROPIUM BROMIDE [Concomitant]
     Active Substance: TIOTROPIUM BROMIDE
     Dosage: 2 DF,QD
     Route: 055
     Dates: start: 2016
  11. PREDNISOLONE. [Concomitant]
     Active Substance: PREDNISOLONE
     Dosage: 20 MG, QD
     Route: 048
     Dates: start: 20180330, end: 20180405
  12. PREDNISOLONE. [Concomitant]
     Active Substance: PREDNISOLONE
     Dosage: 10 MG, QD
     Route: 048
     Dates: start: 20180406, end: 20180412
  13. LEVOTHYROXINE. [Concomitant]
     Active Substance: LEVOTHYROXINE
     Indication: HYPOTHYROIDISM
     Dosage: 100 UG,QD
     Route: 048
     Dates: start: 2002
  14. PREDNISOLONE. [Concomitant]
     Active Substance: PREDNISOLONE
     Dosage: 5 MG, QD
     Route: 048
     Dates: start: 20180413, end: 20180419

REACTIONS (1)
  - Sinusitis [Recovered/Resolved]

NARRATIVE: CASE EVENT DATE: 20180222
